FAERS Safety Report 5217549-4 (Version None)
Quarter: 2007Q1

REPORT INFORMATION
  Report Type: 
  Country: None (occurrence: None)
  Receive Date: 20070124
  Receipt Date: 20060317
  Transmission Date: 20070707
  Serious: No
  Sender: FDA-Public Use
  Company Number: US-GLAXOSMITHKLINE-A0598035A

PATIENT
  Age: 56 Year
  Sex: Female

DRUGS (5)
  1. PAXIL CR [Suspect]
     Indication: DEPRESSION
     Dosage: 25MG ALTERNATE DAYS
     Route: 048
     Dates: start: 20051125, end: 20060313
  2. WELLBUTRIN SR [Suspect]
     Indication: DEPRESSION
     Route: 048
     Dates: start: 20050301
  3. DIOVAN [Concomitant]
  4. THYROID TAB [Concomitant]
  5. LEVAQUIN [Concomitant]

REACTIONS (7)
  - ALOPECIA [None]
  - BLOOD PRESSURE INCREASED [None]
  - BONE PAIN [None]
  - DRY MOUTH [None]
  - EMOTIONAL DISORDER [None]
  - INSOMNIA [None]
  - VERTIGO [None]
